FAERS Safety Report 9129469 (Version 1)
Quarter: 2013Q1

REPORT INFORMATION
  Report Type: Spontaneous
  Country: JP (occurrence: JP)
  Receive Date: 20130228
  Receipt Date: 20130228
  Transmission Date: 20140127
  Serious: Yes (Hospitalization)
  Sender: FDA-Public Use
  Company Number: JP-GLAXOSMITHKLINE-B0853053A

PATIENT
  Age: 43 None
  Sex: Male

DRUGS (4)
  1. LAMICTAL [Suspect]
     Indication: DEPRESSION
     Dosage: 25MG PER DAY
     Route: 048
     Dates: start: 20121102, end: 20121108
  2. LAMICTAL [Suspect]
     Indication: DEPRESSION
     Dosage: 50MG PER DAY
     Route: 048
     Dates: start: 20121109, end: 20121116
  3. DORAL [Concomitant]
     Indication: INSOMNIA
     Dosage: 15MG PER DAY
     Route: 048
  4. ROHYPNOL [Concomitant]
     Indication: INSOMNIA
     Dosage: 2MG PER DAY
     Route: 048

REACTIONS (4)
  - Drug eruption [Recovered/Resolved]
  - Pyrexia [Recovered/Resolved]
  - Generalised erythema [Unknown]
  - Mental status changes [Unknown]
